FAERS Safety Report 16940041 (Version 2)
Quarter: 2019Q4

REPORT INFORMATION
  Report Type: Report from Study
  Country: MX (occurrence: MX)
  Receive Date: 20191021
  Receipt Date: 20191028
  Transmission Date: 20200122
  Serious: Yes (Death, Hospitalization, Other)
  Sender: FDA-Public Use
  Company Number: NVSC2019MX010398

PATIENT
  Age: 70 Year
  Sex: Female
  Weight: 66 kg

DRUGS (1)
  1. EXFORGE HCT [Suspect]
     Active Substance: AMLODIPINE BESYLATE\HYDROCHLOROTHIAZIDE\VALSARTAN
     Indication: HYPERTENSION
     Dosage: 1 DF (AMLODIPINE 5 MG, HYDROCHLOROTHIAZIDE 12.5 MG, VALSARTAN 160 MG), QD
     Route: 048
     Dates: start: 2009, end: 20190923

REACTIONS (9)
  - Type 2 diabetes mellitus [Fatal]
  - Shock [Fatal]
  - Multiple organ dysfunction syndrome [Fatal]
  - Hypertension [Fatal]
  - Facial paralysis [Recovered/Resolved]
  - Viral infection [Unknown]
  - Metabolic acidosis [Fatal]
  - Abdominal pain upper [Unknown]
  - Pancreatitis acute [Fatal]

NARRATIVE: CASE EVENT DATE: 2014
